FAERS Safety Report 22694237 (Version 5)
Quarter: 2024Q2

REPORT INFORMATION
  Report Type: Spontaneous
  Country: CA (occurrence: CA)
  Receive Date: 20230711
  Receipt Date: 20240618
  Transmission Date: 20240716
  Serious: Yes (Hospitalization)
  Sender: FDA-Public Use
  Company Number: CA-009507513-2307CAN004244

PATIENT
  Age: 42 Year
  Sex: Male

DRUGS (62)
  1. JANUVIA [Suspect]
     Active Substance: SITAGLIPTIN PHOSPHATE
     Indication: Diabetes mellitus
     Dosage: 100 MILLIGRAM, 1 EVERY 1 DAYS (QD)
     Route: 048
  2. ABILIFY MAINTENA [Suspect]
     Active Substance: ARIPIPRAZOLE
     Indication: Psychotic disorder
     Dosage: 400 MILLIGRAM, 1 EVERY 1 MONTHS (QM)
     Route: 030
  3. AMITRIPTYLINE [Suspect]
     Active Substance: AMITRIPTYLINE
     Indication: Sleep disorder
     Dosage: 10 MILLIGRAM
     Route: 065
  4. AMITRIPTYLINE [Suspect]
     Active Substance: AMITRIPTYLINE
     Indication: Affective disorder
     Dosage: 10 MILLIGRAM, 1 EVERY 1 DAYS (QD)
     Route: 048
  5. APIDRA [Suspect]
     Active Substance: INSULIN GLULISINE
     Indication: Diabetes mellitus
     Dosage: 2 EVERY 1 DAYS
     Route: 058
  6. APIDRA [Suspect]
     Active Substance: INSULIN GLULISINE
     Indication: Product used for unknown indication
     Dosage: 2 EVERY 1 DAYS
     Route: 058
  7. APIDRA [Suspect]
     Active Substance: INSULIN GLULISINE
     Dosage: 1 EVERY 5 DAYS
     Route: 058
  8. APIDRA [Suspect]
     Active Substance: INSULIN GLULISINE
     Dosage: 2 EVERY 1 DAYS (BID); FORM: SOLUTION SUBCUTANEOUS
     Route: 058
  9. CABOTEGRAVIR [Suspect]
     Active Substance: CABOTEGRAVIR
     Indication: HIV infection
     Dosage: UNK
     Route: 030
  10. CABOTEGRAVIR [Suspect]
     Active Substance: CABOTEGRAVIR
     Dosage: UNK
     Route: 030
  11. CABOTEGRAVIR [Suspect]
     Active Substance: CABOTEGRAVIR
     Dosage: UNK
     Route: 030
  12. CABOTEGRAVIR [Suspect]
     Active Substance: CABOTEGRAVIR
     Dosage: UNK
     Route: 030
  13. COCAINE [Suspect]
     Active Substance: COCAINE
     Indication: Product used for unknown indication
     Route: 065
  14. DOXEPIN HYDROCHLORIDE [Suspect]
     Active Substance: DOXEPIN HYDROCHLORIDE
     Indication: Sleep disorder
     Dosage: 10 MILLIGRAM, 1 EVERY 1 DAYS (QD)
     Route: 048
  15. DOXEPIN HYDROCHLORIDE [Suspect]
     Active Substance: DOXEPIN HYDROCHLORIDE
     Indication: Affective disorder
     Dosage: UNK
     Route: 048
  16. DOXEPIN HYDROCHLORIDE [Suspect]
     Active Substance: DOXEPIN HYDROCHLORIDE
     Dosage: UNK
     Route: 065
  17. GLICLAZIDE [Suspect]
     Active Substance: GLICLAZIDE
     Indication: Product used for unknown indication
     Dosage: 30 MILLIGRAM, 2 EVERY 1 DAYS (BID)
     Route: 048
  18. GLICLAZIDE [Suspect]
     Active Substance: GLICLAZIDE
     Dosage: 60 MILLIGRAM, 2 EVERY 1 DAYS (BID)
     Route: 048
  19. GLICLAZIDE [Suspect]
     Active Substance: GLICLAZIDE
     Dosage: 30 MILLIGRAM, 2 EVERY 1 DAYS (BID)
     Route: 048
  20. GLICLAZIDE [Suspect]
     Active Substance: GLICLAZIDE
     Dosage: 60 MILLIGRAM, 2 EVERY 1 DAYS (BID)
     Route: 065
  21. CABENUVA [Suspect]
     Active Substance: CABOTEGRAVIR\RILPIVIRINE
     Indication: Product used for unknown indication
     Dosage: UNK
     Route: 030
  22. CABENUVA [Suspect]
     Active Substance: CABOTEGRAVIR\RILPIVIRINE
     Indication: HIV infection
     Dosage: UNK
     Route: 030
  23. CABENUVA [Suspect]
     Active Substance: CABOTEGRAVIR\RILPIVIRINE
     Dosage: UNK
     Route: 030
  24. CABENUVA [Suspect]
     Active Substance: CABOTEGRAVIR\RILPIVIRINE
     Dosage: UNK
     Route: 030
  25. CABENUVA [Suspect]
     Active Substance: CABOTEGRAVIR\RILPIVIRINE
     Dosage: UNK
     Route: 030
  26. CABENUVA [Suspect]
     Active Substance: CABOTEGRAVIR\RILPIVIRINE
     Dosage: UNK
     Route: 030
  27. CABENUVA [Suspect]
     Active Substance: CABOTEGRAVIR\RILPIVIRINE
     Indication: Product used for unknown indication
     Route: 030
  28. CABENUVA [Suspect]
     Active Substance: CABOTEGRAVIR\RILPIVIRINE
     Indication: HIV infection
     Dosage: UNK
     Route: 030
  29. DIVALPROEX SODIUM [Suspect]
     Active Substance: DIVALPROEX SODIUM
     Indication: Product used for unknown indication
     Dosage: 500 MILLIGRAM, 1 EVERY 12 HOURS (Q12H); FORM: TABLET, DELAYED RELEASE
     Route: 048
  30. DIVALPROEX SODIUM [Suspect]
     Active Substance: DIVALPROEX SODIUM
     Dosage: 500 MILLIGRAM, 1 EVERY .5 DAYS
     Route: 048
  31. DIVALPROEX SODIUM [Suspect]
     Active Substance: DIVALPROEX SODIUM
     Dosage: 500 MILLIGRAM, 1 EVERY 12 HOURS (Q12H); FORM: UNKNOWN
     Route: 048
  32. JARDIANCE [Suspect]
     Active Substance: EMPAGLIFLOZIN
     Indication: Diabetes mellitus
     Dosage: 25 MILLIGRAM
     Route: 048
  33. JARDIANCE [Suspect]
     Active Substance: EMPAGLIFLOZIN
     Dosage: 25 MILLIGRAM
     Route: 048
  34. JARDIANCE [Suspect]
     Active Substance: EMPAGLIFLOZIN
     Dosage: 25 MILLIGRAM, QD
     Route: 048
  35. METHAMPHETAMINE HYDROCHLORIDE [Suspect]
     Active Substance: METHAMPHETAMINE HYDROCHLORIDE
     Indication: Product used for unknown indication
     Dosage: UNK
     Route: 065
  36. METFORMIN [Suspect]
     Active Substance: METFORMIN HYDROCHLORIDE
     Indication: Diabetes mellitus
     Dosage: 500 MG, 1 EVERY 12 HOURS (Q12H)
     Route: 048
  37. METFORMIN [Suspect]
     Active Substance: METFORMIN HYDROCHLORIDE
     Dosage: 500 MILLIGRAM, 2 EVERY 1 DAYS (BID)
     Route: 048
  38. METFORMIN [Suspect]
     Active Substance: METFORMIN HYDROCHLORIDE
     Dosage: 1 EVERY 5 DAYS
     Route: 048
  39. ROSUVASTATIN [Suspect]
     Active Substance: ROSUVASTATIN
     Indication: Blood cholesterol abnormal
     Dosage: 10 MILLIGRAM, 1 EVERY 1 DAYS (QD); FORM: NOT SPECIFIED
     Route: 048
  40. SEMAGLUTIDE [Suspect]
     Active Substance: SEMAGLUTIDE
     Indication: Weight decreased
     Dosage: 1 MILLIGRAM, 1 EVERY 1 WEEKS (QW)
     Route: 058
  41. SEMAGLUTIDE [Suspect]
     Active Substance: SEMAGLUTIDE
     Indication: Diabetes mellitus
     Dosage: UNK
     Route: 065
  42. SEMAGLUTIDE [Suspect]
     Active Substance: SEMAGLUTIDE
     Dosage: UNK
     Route: 065
  43. SEMAGLUTIDE [Suspect]
     Active Substance: SEMAGLUTIDE
     Dosage: 1 EVERY 1 WEEKS (QW)
     Route: 058
  44. TOPIRAMATE [Suspect]
     Active Substance: TOPIRAMATE
     Indication: Anxiety
     Dosage: 25 MILLIGRAM
     Route: 048
  45. TOPIRAMATE [Suspect]
     Active Substance: TOPIRAMATE
     Dosage: 25 MILLIGRAM
     Route: 048
  46. TOPIRAMATE [Suspect]
     Active Substance: TOPIRAMATE
     Dosage: 25 MILLIGRAM, 1 EVERY 1 DAYS (QD)
     Route: 048
  47. TRANDOLAPRIL [Suspect]
     Active Substance: TRANDOLAPRIL
     Indication: Blood pressure abnormal
     Dosage: 1 MILLIGRAM, 1 EVERY 1 DAYS (QD)
     Route: 048
  48. TRANDOLAPRIL [Suspect]
     Active Substance: TRANDOLAPRIL
     Indication: Product used for unknown indication
  49. TOUJEO [Suspect]
     Active Substance: INSULIN GLARGINE
     Indication: Diabetes mellitus
     Dosage: 25 INTERNATIONAL UNIT, 1 EVERY 1 DAYS (QD)
     Route: 058
  50. TRAZODONE [Suspect]
     Active Substance: TRAZODONE HYDROCHLORIDE
     Indication: Sleep disorder
     Dosage: 50 MILLIGRAM
     Route: 048
  51. TRAZODONE [Suspect]
     Active Substance: TRAZODONE HYDROCHLORIDE
     Indication: Product used for unknown indication
     Dosage: 50 MILLIGRAM
     Route: 048
  52. TRAZODONE [Suspect]
     Active Substance: TRAZODONE HYDROCHLORIDE
     Dosage: 50 MILLIGRAM, 1 EVERY 1 DAYS (QD)
     Route: 048
  53. RILPIVIRINE [Suspect]
     Active Substance: RILPIVIRINE
     Indication: HIV infection
     Dosage: UNK
     Route: 030
  54. RILPIVIRINE [Suspect]
     Active Substance: RILPIVIRINE
     Dosage: UNK
     Route: 030
  55. RILPIVIRINE [Suspect]
     Active Substance: RILPIVIRINE
     Dosage: UNK
     Route: 030
  56. RILPIVIRINE [Suspect]
     Active Substance: RILPIVIRINE
     Dosage: UNK
     Route: 030
  57. DIVALPROEX SODIUM [Suspect]
     Active Substance: DIVALPROEX SODIUM
     Indication: Product used for unknown indication
     Dosage: 500 MILLIGRAM, 2 EVERY 1 DAYS (BID)
     Route: 048
  58. DIVALPROEX SODIUM [Suspect]
     Active Substance: DIVALPROEX SODIUM
     Dosage: 500 MILLIGRAM, 2 EVERY 1 DAYS (BID)
     Route: 048
  59. ABACAVIR SULFATE\DOLUTEGRAVIR SODIUM\LAMIVUDINE [Concomitant]
     Active Substance: ABACAVIR SULFATE\DOLUTEGRAVIR SODIUM\LAMIVUDINE
     Indication: HIV infection
     Dosage: UNK
     Route: 065
  60. EDURANT [Concomitant]
     Active Substance: RILPIVIRINE HYDROCHLORIDE
     Indication: HIV infection
     Dosage: 25 MILLIGRAM
     Route: 048
  61. CABOTEGRAVIR SODIUM [Concomitant]
     Active Substance: CABOTEGRAVIR SODIUM
     Indication: HIV infection
     Dosage: 30 MILLIGRAM
     Route: 048
  62. VOCABRIA [Concomitant]
     Active Substance: CABOTEGRAVIR SODIUM
     Indication: HIV infection
     Dosage: 30 MILLIGRAM
     Route: 048

REACTIONS (6)
  - Aggression [Recovered/Resolved]
  - Inappropriate schedule of product administration [Recovered/Resolved]
  - Product dose omission issue [Recovered/Resolved]
  - Product use in unapproved indication [Recovered/Resolved]
  - Psychotic disorder [Recovered/Resolved]
  - Substance use [Recovered/Resolved]
